FAERS Safety Report 7900877-9 (Version None)
Quarter: 2011Q4

REPORT INFORMATION
  Report Type: 
  Country: None (occurrence: None)
  Receive Date: 20111108
  Receipt Date: 20111026
  Transmission Date: 20120403
  Serious: Yes (Hospitalization)
  Sender: FDA-Public Use
  Company Number: US-PFIZER INC-2011195452

PATIENT
  Sex: Male
  Weight: 67.755 kg

DRUGS (8)
  1. VARENICLINE TARTRATE [Suspect]
     Indication: SMOKING CESSATION THERAPY
     Dosage: 1 MG, 2X/DAY
     Route: 048
     Dates: start: 20110812
  2. MAGNESIUM [Concomitant]
     Indication: MEDICAL DIET
     Dosage: UNK
  3. HYDROXYZINE [Concomitant]
     Indication: SEASONAL ALLERGY
     Dosage: UNK
  4. BUSPAR [Concomitant]
     Indication: ANXIETY
     Dosage: UNK
  5. VITAMIN B-12 [Concomitant]
     Indication: MEDICAL DIET
     Dosage: UNK
  6. THYROID TAB [Concomitant]
     Indication: HYPOTHYROIDISM
     Dosage: UNK
  7. ANASTROZOLE [Concomitant]
     Indication: BLOOD TESTOSTERONE DECREASED
     Dosage: UNK
  8. LORAZEPAM [Concomitant]
     Indication: ANXIETY
     Dosage: UNK

REACTIONS (1)
  - PRESYNCOPE [None]
